FAERS Safety Report 5974251-9 (Version None)
Quarter: 2008Q4

REPORT INFORMATION
  Report Type: 
  Country: None (occurrence: None)
  Receive Date: 20081201
  Receipt Date: 20081119
  Transmission Date: 20090506
  Serious: No
  Sender: FDA-Public Use
  Company Number: FR-PFIZER INC-2008092607

PATIENT
  Sex: Male

DRUGS (1)
  1. LYRICA [Suspect]
     Route: 048
     Dates: start: 20081009

REACTIONS (3)
  - EYE PAIN [None]
  - EYELID OEDEMA [None]
  - HORDEOLUM [None]
